FAERS Safety Report 8963230 (Version 3)
Quarter: 2013Q1

REPORT INFORMATION
  Report Type: Spontaneous
  Country: US (occurrence: US)
  Receive Date: 20121214
  Receipt Date: 20130214
  Transmission Date: 20140127
  Serious: Yes (Other)
  Sender: FDA-Public Use
  Company Number: US-PFIZER INC-2012316754

PATIENT
  Age: 65 Year
  Sex: Female

DRUGS (10)
  1. LYRICA [Suspect]
     Dosage: 150 MG, 2X/DAY
     Route: 048
  2. BACLOFEN [Concomitant]
     Dosage: 10 MG, 3X/DAY
  3. DESYREL [Concomitant]
     Dosage: 50 MG, 1X/DAY
  4. FENTANYL [Concomitant]
     Dosage: 100 UG,Q 72HOURS
  5. LAMICTAL [Concomitant]
     Dosage: 200 MG, 1X/DAY
  6. LEXAPRO [Concomitant]
     Dosage: 10 MG, 1X/DAY
  7. TRAZODONE [Concomitant]
     Dosage: 50 MG, QHS
  8. XANAX [Concomitant]
     Dosage: 0.5 MG, 3X/DAY
     Route: 048
  9. LIORESAL [Concomitant]
     Dosage: 10 MG ? TAB 3X/DAY
     Route: 048
  10. CELEBREX [Concomitant]
     Dosage: 200 MG, 2X/DAY
     Route: 048

REACTIONS (2)
  - Depression [Unknown]
  - Suicidal behaviour [Unknown]
